FAERS Safety Report 8350514-7 (Version None)
Quarter: 2012Q2

REPORT INFORMATION
  Report Type: 
  Country: None (occurrence: None)
  Receive Date: 20120510
  Receipt Date: 20120502
  Transmission Date: 20120825
  Serious: Yes (Hospitalization)
  Sender: FDA-Public Use
  Company Number: US-ALEXION-A201200872

PATIENT
  Sex: Female

DRUGS (1)
  1. SOLIRIS [Suspect]
     Indication: PAROXYSMAL NOCTURNAL HAEMOGLOBINURIA
     Dosage: UNK
     Route: 042

REACTIONS (7)
  - ABDOMINAL DISTENSION [None]
  - FIBRIN D DIMER INCREASED [None]
  - HEADACHE [None]
  - HAEMOGLOBIN DECREASED [None]
  - SPLENOMEGALY [None]
  - MYALGIA [None]
  - MALAISE [None]
